FAERS Safety Report 6994371-X (Version None)
Quarter: 2010Q3

REPORT INFORMATION
  Report Type: 
  Country: None (occurrence: None)
  Receive Date: 20100917
  Receipt Date: 20100908
  Transmission Date: 20110219
  Serious: Yes (Hospitalization)
  Sender: FDA-Public Use
  Company Number: US-AMGEN-QUU436851

PATIENT
  Age: 76 Year
  Sex: Male

DRUGS (6)
  1. NEULASTA [Suspect]
     Indication: CHEMOTHERAPY
     Route: 065
  2. PREDNISONE [Suspect]
     Dates: start: 20100803, end: 20100803
  3. ANTINEOPLASTIC AGENTS [Suspect]
     Route: 042
  4. COUMADIN [Concomitant]
  5. TAXOTERE [Concomitant]
  6. UNSPECIFIED MEDICATION [Concomitant]

REACTIONS (7)
  - BRADYCARDIA [None]
  - GENERAL PHYSICAL HEALTH DETERIORATION [None]
  - HAEMODIALYSIS [None]
  - INTERNATIONAL NORMALISED RATIO INCREASED [None]
  - NEUTROPENIA [None]
  - RENAL FAILURE ACUTE [None]
  - TUMOUR LYSIS SYNDROME [None]
